FAERS Safety Report 9678183 (Version 1)
Quarter: 2013Q4

REPORT INFORMATION
  Report Type: Spontaneous
  Country: IT (occurrence: IT)
  Receive Date: 20131108
  Receipt Date: 20131108
  Transmission Date: 20140711
  Serious: Yes (Hospitalization)
  Sender: FDA-Public Use
  Company Number: PHHY2013IT123746

PATIENT
  Sex: Female

DRUGS (5)
  1. FUROSEMIDE [Suspect]
     Indication: WEIGHT LOSS DIET
     Dosage: 125 MG, BID
     Route: 048
     Dates: start: 20121010, end: 20131010
  2. TOLEP [Concomitant]
  3. VERTISERC [Concomitant]
  4. OMEPRAZEN [Concomitant]
  5. XERISTAR [Concomitant]

REACTIONS (3)
  - Hypochloraemia [Recovering/Resolving]
  - Off label use [Recovering/Resolving]
  - Hypokalaemia [Recovering/Resolving]
